FAERS Safety Report 11906259 (Version 1)
Quarter: 2016Q1

REPORT INFORMATION
  Report Type: Spontaneous
  Country: US (occurrence: None)
  Receive Date: 20160108
  Receipt Date: 20160108
  Transmission Date: 20160526
  Serious: No
  Sender: FDA-Public Use
  Company Number: None

PATIENT
  Age: 63 Year
  Sex: Male
  Weight: 69.85 kg

DRUGS (10)
  1. LISINOPRIL. [Concomitant]
     Active Substance: LISINOPRIL
  2. CYMBALTA [Concomitant]
     Active Substance: DULOXETINE HYDROCHLORIDE
  3. LIPITOR [Concomitant]
     Active Substance: ATORVASTATIN CALCIUM
  4. GARLIC TABLETS [Concomitant]
     Active Substance: GARLIC
  5. OMEPRAZOLE. [Concomitant]
     Active Substance: OMEPRAZOLE
  6. CALCIUM [Concomitant]
     Active Substance: CALCIUM
  7. RAPAFLO [Suspect]
     Active Substance: SILODOSIN
     Indication: MICTURITION URGENCY
     Dosage: 1 CAPSULE AFTER DINNER ONCE DAILY TAKEN BY MOUTH
     Route: 048
     Dates: start: 20160106
  8. MAGNESIUM [Concomitant]
     Active Substance: MAGNESIUM
  9. ZINC [Concomitant]
     Active Substance: ZINC\ZINC CHLORIDE
  10. GINGKO BILOBA [Concomitant]

REACTIONS (5)
  - Extrasystoles [None]
  - Palpitations [None]
  - Anxiety [None]
  - Feeling abnormal [None]
  - Insomnia [None]

NARRATIVE: CASE EVENT DATE: 20160106
